FAERS Safety Report 7293752-7 (Version None)
Quarter: 2011Q1

REPORT INFORMATION
  Report Type: 
  Country: None (occurrence: None)
  Receive Date: 20110202
  Receipt Date: 20110118
  Transmission Date: 20110831
  Serious: No
  Sender: FDA-Public Use
  Company Number: JPI-P-013433

PATIENT
  Age: 50 Year
  Sex: Female
  Weight: 83.9154 kg

DRUGS (7)
  1. FUROSEMIDE [Concomitant]
  2. LISINOPRIL [Concomitant]
  3. AMPHETAMINE/DEXTROAMPHETAMINE [Suspect]
     Indication: PRODUCT USED FOR UNKNOWN INDICATION
     Dosage: 20 MG (20 MG,1 IN 1 D)
     Dates: start: 20101001, end: 20110111
  4. XYREM [Suspect]
     Indication: FIBROMYALGIA
     Dosage: ORAL
     Route: 048
     Dates: start: 20100401, end: 20100101
  5. ALCOHOL [Suspect]
     Indication: ALCOHOL USE
     Dates: start: 20101230
  6. ESCITALOPRAM OXALATE [Concomitant]
  7. BUPROPION HCL [Suspect]
     Indication: DEPRESSION
     Dosage: (150 MG)
     Dates: start: 20100801, end: 20110112

REACTIONS (11)
  - BURNING SENSATION [None]
  - POSTURE ABNORMAL [None]
  - UNRESPONSIVE TO STIMULI [None]
  - POOR QUALITY SLEEP [None]
  - EYE MOVEMENT DISORDER [None]
  - PAIN [None]
  - CONDITION AGGRAVATED [None]
  - CONVULSION [None]
  - MOVEMENT DISORDER [None]
  - ARTHRALGIA [None]
  - ALCOHOL INTERACTION [None]
